FAERS Safety Report 24835020 (Version 1)
Quarter: 2025Q1

REPORT INFORMATION
  Report Type: Spontaneous
  Country: US (occurrence: US)
  Receive Date: 20250113
  Receipt Date: 20250113
  Transmission Date: 20250409
  Serious: Yes (Hospitalization)
  Sender: Haleon PLC
  Company Number: US-HALEON-2221095

PATIENT
  Age: 66 Year
  Sex: Male

DRUGS (3)
  1. IBUPROFEN [Suspect]
     Active Substance: IBUPROFEN
     Indication: Product used for unknown indication
  2. HERBALS [Suspect]
     Active Substance: HERBALS
     Indication: Product used for unknown indication
  3. TRAMADOL HYDROCHLORIDE [Suspect]
     Active Substance: TRAMADOL HYDROCHLORIDE
     Indication: Product used for unknown indication

REACTIONS (4)
  - Balance disorder [Unknown]
  - Presyncope [Unknown]
  - Bradyarrhythmia [Unknown]
  - Drug interaction [Unknown]
